FAERS Safety Report 18319274 (Version 1)
Quarter: 2020Q3

REPORT INFORMATION
  Report Type: Spontaneous
  Country: US (occurrence: US)
  Receive Date: 20200928
  Receipt Date: 20200928
  Transmission Date: 20201103
  Serious: Yes (Hospitalization)
  Sender: FDA-Public Use
  Company Number: US-ACCORD-202441

PATIENT
  Age: 80 Year
  Sex: Male
  Weight: 66.22 kg

DRUGS (8)
  1. METAMUCIL [Concomitant]
     Active Substance: PLANTAGO SEED
  2. ISOSORBIDE. [Concomitant]
     Active Substance: ISOSORBIDE
     Route: 048
  3. FINASTERIDE. [Suspect]
     Active Substance: FINASTERIDE
     Indication: PROSTATOMEGALY
     Dosage: STRENGTH: 5MG
     Route: 048
     Dates: start: 20191030, end: 202003
  4. UBIDECARENONE [Concomitant]
     Active Substance: UBIDECARENONE
     Dosage: ONCE A DAY
     Route: 048
  5. GABAPENTIN. [Concomitant]
     Active Substance: GABAPENTIN
     Dosage: ONCE A DAY
  6. IRON [Concomitant]
     Active Substance: IRON
     Dosage: ONCE A DAY
     Route: 048
  7. LIPITOR [Concomitant]
     Active Substance: ATORVASTATIN CALCIUM
  8. ACETYLSALICYLIC ACID [Concomitant]
     Active Substance: ASPIRIN
     Dosage: ONCE A DAY
     Route: 048

REACTIONS (4)
  - Breast tenderness [Not Recovered/Not Resolved]
  - Pulmonary hypertension [Unknown]
  - Benign breast neoplasm [Unknown]
  - Malaise [Unknown]

NARRATIVE: CASE EVENT DATE: 202002
